FAERS Safety Report 4832598-3 (Version None)
Quarter: 2005Q4

REPORT INFORMATION
  Report Type: 
  Country: None (occurrence: None)
  Receive Date: 20051121
  Receipt Date: 20051109
  Transmission Date: 20060501
  Serious: Yes (Hospitalization)
  Sender: FDA-Public Use
  Company Number: US-JNJFOC-20051102605

PATIENT
  Sex: Female

DRUGS (9)
  1. INFLIXIMAB [Suspect]
     Indication: RHEUMATOID ARTHRITIS
     Route: 042
  2. ARAVA [Concomitant]
  3. ASPIRIN [Concomitant]
  4. ATENOLOL [Concomitant]
  5. CALCIUM GLUCONATE [Concomitant]
  6. HYDROCHLOROTHIAZIDE [Concomitant]
  7. IRON [Concomitant]
  8. THYROID TAB [Concomitant]
  9. POTASSIUM [Concomitant]

REACTIONS (7)
  - ATRIAL FIBRILLATION [None]
  - CORONARY ARTERY DISEASE [None]
  - CORONARY ARTERY OCCLUSION [None]
  - DYSPNOEA [None]
  - HYPOKALAEMIA [None]
  - HYPONATRAEMIA [None]
  - MYOCARDIAL INFARCTION [None]
